FAERS Safety Report 6136729-7 (Version None)
Quarter: 2009Q1

REPORT INFORMATION
  Report Type: 
  Country: None (occurrence: None)
  Receive Date: 20090330
  Receipt Date: 20090326
  Transmission Date: 20090719
  Serious: Yes (Life-Threatening)
  Sender: FDA-Public Use
  Company Number: PHHY2009NL11208

PATIENT
  Sex: Female
  Weight: 59 kg

DRUGS (2)
  1. EXELON [Suspect]
     Indication: DEMENTIA WITH LEWY BODIES
     Dosage: 9.5 MG/24HRS
     Route: 062
     Dates: start: 20081010
  2. SEROQUEL [Concomitant]
     Dosage: 25 MG, QD

REACTIONS (3)
  - ABNORMAL BEHAVIOUR [None]
  - AGGRESSION [None]
  - CONFUSIONAL STATE [None]
